FAERS Safety Report 17760652 (Version 2)
Quarter: 2020Q2

REPORT INFORMATION
  Report Type: Spontaneous
  Country: CN (occurrence: CN)
  Receive Date: 20200508
  Receipt Date: 20200514
  Transmission Date: 20200714
  Serious: Yes (Hospitalization)
  Sender: FDA-Public Use
  Company Number: CN-CELGENEUS-CHN-20200501440

PATIENT
  Age: 46 Year
  Sex: Female

DRUGS (4)
  1. HUMAN GRANULOCYTE MACROPHAGE COLONY STIMULATING FACTOR [Concomitant]
     Indication: WHITE BLOOD CELL COUNT INCREASED
     Dosage: 300 MICROGRAM
     Route: 065
     Dates: start: 20191013, end: 20191015
  2. ABRAXANE [Suspect]
     Active Substance: PACLITAXEL
     Indication: BREAST CANCER
     Dosage: 200 MILLIGRAM
     Route: 041
     Dates: start: 20191009
  3. CARBOPLATIN. [Suspect]
     Active Substance: CARBOPLATIN
     Indication: BREAST CANCER
     Dosage: 480 MILLIGRAM
     Route: 041
     Dates: start: 20191009
  4. HUMAN GRANULOCYTE COLONY STIMULATING FACTOR [Concomitant]
     Indication: WHITE BLOOD CELL COUNT INCREASED
     Dosage: 300 MICROGRAM
     Route: 065
     Dates: start: 20191012, end: 20191015

REACTIONS (1)
  - Bone marrow failure [Not Recovered/Not Resolved]

NARRATIVE: CASE EVENT DATE: 20191015
